FAERS Safety Report 18793475 (Version 2)
Quarter: 2021Q1

REPORT INFORMATION
  Report Type: Report from Study
  Country: US (occurrence: US)
  Receive Date: 20210127
  Receipt Date: 20210303
  Transmission Date: 20210419
  Serious: Yes (Death, Hospitalization, Other)
  Sender: FDA-Public Use
  Company Number: US-BRISTOL-MYERS SQUIBB COMPANY-BMS-2021-006202

PATIENT
  Age: 72 Year
  Sex: Male
  Weight: 64.5 kg

DRUGS (3)
  1. NIVOLUMAB [Suspect]
     Active Substance: NIVOLUMAB
     Indication: BLADDER CANCER
     Dosage: 217 MILLIGRAM, Q3WK
     Route: 042
     Dates: start: 20200928, end: 20201223
  2. IPILIMUMAB [Suspect]
     Active Substance: IPILIMUMAB
     Indication: BLADDER CANCER
     Dosage: 72 MILLIGRAM, Q3WK
     Route: 042
     Dates: start: 20200928
  3. CABOZANTINIB [Suspect]
     Active Substance: CABOZANTINIB
     Indication: BLADDER CANCER
     Dosage: 0 MILLIGRAM, Q3WK
     Route: 048
     Dates: start: 20200928, end: 20201130

REACTIONS (3)
  - Acute respiratory failure [Fatal]
  - COVID-19 [Unknown]
  - Pleural effusion [Unknown]

NARRATIVE: CASE EVENT DATE: 20201227
